FAERS Safety Report 4791513-1 (Version None)
Quarter: 2005Q4

REPORT INFORMATION
  Report Type: 
  Country: None (occurrence: None)
  Receive Date: 20051007
  Receipt Date: 20041207
  Transmission Date: 20060501
  Serious: No
  Sender: FDA-Public Use
  Company Number: US-BRISTOL-MYERS SQUIBB COMPANY-12788360

PATIENT
  Age: 78 Year
  Sex: Male
  Weight: 68 kg

DRUGS (12)
  1. AVAPRO [Suspect]
     Indication: HYPERTENSION
     Dosage: BEGAN 1-2 YEARS PRIOR AT 150 MG WITH 300 MG ON OCCASION
     Route: 048
  2. HYDROCHLOROTHIAZIDE [Concomitant]
  3. COUMADIN [Concomitant]
  4. HYDREA [Concomitant]
  5. PRILOSEC [Concomitant]
  6. CALCIUM GLUCONATE [Concomitant]
  7. CENTRUM [Concomitant]
  8. VITAMIN B6 [Concomitant]
  9. VITAMIN B-12 [Concomitant]
  10. ASCORBIC ACID [Concomitant]
  11. VITAMIN E [Concomitant]
  12. FOLIC ACID [Concomitant]

REACTIONS (2)
  - BLOOD PRESSURE INCREASED [None]
  - HEART RATE INCREASED [None]
